FAERS Safety Report 5586778-2 (Version None)
Quarter: 2008Q1

REPORT INFORMATION
  Report Type: 
  Country: None (occurrence: None)
  Receive Date: 20080110
  Receipt Date: 20080102
  Transmission Date: 20080703
  Serious: Yes (Hospitalization)
  Sender: FDA-Public Use
  Company Number: US-BAYER-200810057BCC

PATIENT
  Age: 19 Year
  Sex: Male

DRUGS (1)
  1. ALEVE [Suspect]
     Indication: OEDEMA PERIPHERAL
     Route: 048
     Dates: start: 20070801

REACTIONS (3)
  - DEHYDRATION [None]
  - GASTRIC ULCER [None]
  - OEDEMA PERIPHERAL [None]
